FAERS Safety Report 12954277 (Version 4)
Quarter: 2017Q4

REPORT INFORMATION
  Report Type: Report from Study
  Country: JP (occurrence: JP)
  Receive Date: 20161118
  Receipt Date: 20171018
  Transmission Date: 20180320
  Serious: Yes (Life-Threatening, Hospitalization, Other)
  Sender: FDA-Public Use
  Company Number: JP-SHIRE-JP201616794AA

PATIENT
  Age: 8 Month
  Sex: Female
  Weight: 5.4 kg

DRUGS (22)
  1. MUCOSOLVAN [Concomitant]
     Active Substance: AMBROXOL HYDROCHLORIDE
     Indication: GAUCHER^S DISEASE
     Dosage: 18 MG/DAY
     Route: 048
  2. TEGRETOL [Concomitant]
     Active Substance: CARBAMAZEPINE
     Indication: PRODUCT USED FOR UNKNOWN INDICATION
     Dosage: 30-60 MG/DAY
     Route: 048
     Dates: start: 20170407
  3. VELAGLUCERASE ALFA [Suspect]
     Active Substance: VELAGLUCERASE ALFA
     Dosage: 40 IU/KG, 1X/2WKS
     Route: 041
     Dates: start: 20170327, end: 20170327
  4. MIYA-BM [Concomitant]
     Active Substance: CLOSTRIDIUM BUTYRICUM SPORES STRAIN M-55
     Indication: PROPHYLAXIS
     Dosage: 6 G/DAY
     Route: 048
     Dates: start: 20160808
  5. CERCINE [Concomitant]
     Active Substance: DIAZEPAM
     Indication: PRODUCT USED FOR UNKNOWN INDICATION
     Dosage: 2-6 MG/DAY
     Route: 048
     Dates: start: 20161005
  6. TRICLOFOS SODIUM [Concomitant]
     Active Substance: TRICLOFOS SODIUM
     Indication: GAUCHER^S DISEASE
  7. MIDAZOLAM [Concomitant]
     Active Substance: MIDAZOLAM HYDROCHLORIDE
     Indication: PRODUCT USED FOR UNKNOWN INDICATION
     Dosage: 2 MG/DOSE
     Route: 065
     Dates: start: 20160825
  8. CEFOTAXIME [Concomitant]
     Active Substance: CEFOTAXIME SODIUM
     Indication: PRODUCT USED FOR UNKNOWN INDICATION
     Dosage: 300 MG/DAY
     Route: 041
     Dates: start: 20160827, end: 20160831
  9. NAFAMOSTAT [Concomitant]
     Active Substance: NAFAMOSTAT
     Indication: PRODUCT USED FOR UNKNOWN INDICATION
     Dosage: 1 MG
     Route: 041
     Dates: start: 20160828, end: 20160830
  10. TRICLOFOS SODIUM [Concomitant]
     Active Substance: TRICLOFOS SODIUM
     Indication: PRODUCT USED FOR UNKNOWN INDICATION
     Dosage: 2-6 ML/DOSE
     Route: 048
     Dates: start: 20161005
  11. PHENOBAL                           /00023201/ [Concomitant]
     Active Substance: PHENOBARBITAL
     Indication: PRODUCT USED FOR UNKNOWN INDICATION
     Dosage: 32.5-70 MG/DAY
     Route: 048
     Dates: start: 20161005
  12. DANTRIUM [Concomitant]
     Active Substance: DANTROLENE SODIUM
     Indication: PRODUCT USED FOR UNKNOWN INDICATION
     Dosage: 7-12.5 MG/DAY
     Route: 048
     Dates: start: 20170120, end: 20170316
  13. VELAGLUCERASE ALFA [Suspect]
     Active Substance: VELAGLUCERASE ALFA
     Indication: GAUCHER^S DISEASE
     Dosage: 60 IU/KG, 1X/2WKS
     Route: 041
     Dates: start: 20160528, end: 20160815
  14. VELAGLUCERASE ALFA [Suspect]
     Active Substance: VELAGLUCERASE ALFA
     Dosage: 60 IU/KG, 1X/2WKS
     Route: 041
     Dates: start: 20161011, end: 20170313
  15. NOBELBAR [Concomitant]
     Active Substance: PHENOBARBITAL SODIUM
     Indication: PRODUCT USED FOR UNKNOWN INDICATION
     Dosage: 20-120MG/DAY
     Route: 041
     Dates: start: 20160827, end: 20160831
  16. RIVOTRIL [Concomitant]
     Active Substance: CLONAZEPAM
     Indication: PRODUCT USED FOR UNKNOWN INDICATION
     Dosage: 0.3-0.9 MG/DAY
     Route: 048
     Dates: start: 20170208
  17. VELAGLUCERASE ALFA [Suspect]
     Active Substance: VELAGLUCERASE ALFA
     Dosage: 60 IU/KG, 1X/2WKS
     Route: 065
     Dates: start: 20170410
  18. RECOMODULIN [Concomitant]
     Active Substance: THROMBOMODULIN ALFA
     Indication: PRODUCT USED FOR UNKNOWN INDICATION
     Dosage: 2560 U
     Route: 041
     Dates: start: 20160827, end: 20160901
  19. CERCINE [Concomitant]
     Active Substance: DIAZEPAM
     Indication: GAUCHER^S DISEASE
  20. ATARAX [Concomitant]
     Active Substance: HYDROXYZINE HYDROCHLORIDE
     Indication: PROPHYLAXIS
     Dosage: 25MG, UNKNOWN
     Route: 042
     Dates: start: 20161011, end: 20161107
  21. NONTHRON [Concomitant]
     Indication: PRODUCT USED FOR UNKNOWN INDICATION
     Dosage: 500 IU/DAY
     Route: 041
     Dates: start: 20160828, end: 20160828
  22. DANTRIUM [Concomitant]
     Active Substance: DANTROLENE SODIUM
     Indication: GAUCHER^S DISEASE

REACTIONS (3)
  - Respiratory failure [Recovered/Resolved with Sequelae]
  - Injection site swelling [Recovering/Resolving]
  - Pyrexia [Not Recovered/Not Resolved]

NARRATIVE: CASE EVENT DATE: 20160827
